FAERS Safety Report 8211314-1 (Version None)
Quarter: 2012Q1

REPORT INFORMATION
  Report Type: 
  Country: None (occurrence: None)
  Receive Date: 20120315
  Receipt Date: 20120311
  Transmission Date: 20120608
  Serious: Yes (Other)
  Sender: FDA-Public Use
  Company Number: US-PFIZER INC-2012063814

PATIENT
  Sex: Male
  Weight: 90.703 kg

DRUGS (3)
  1. LISINOPRIL [Concomitant]
     Indication: HYPERTENSION
     Dosage: UNK
  2. IBUPROFEN (ADVIL) [Suspect]
     Indication: PAIN
     Dosage: 200 MG, AS NEEDED
     Route: 048
     Dates: start: 20120201, end: 20120310
  3. LASIX [Concomitant]
     Indication: OEDEMA PERIPHERAL
     Dosage: UNK

REACTIONS (3)
  - RASH [None]
  - BLISTER [None]
  - PRURITUS [None]
